FAERS Safety Report 6756701-3 (Version None)
Quarter: 2010Q2

REPORT INFORMATION
  Report Type: 
  Country: None (occurrence: None)
  Receive Date: 20100604
  Receipt Date: 20100521
  Transmission Date: 20101027
  Serious: Yes (Hospitalization, Other)
  Sender: FDA-Public Use
  Company Number: US-ELI_LILLY_AND_COMPANY-US201004006864

PATIENT
  Sex: Male

DRUGS (5)
  1. FORTEO [Suspect]
     Indication: OSTEOPOROSIS
     Dosage: 20 UG, DAILY (1/D)
     Dates: start: 20080415, end: 20091101
  2. FORTEO [Suspect]
     Dosage: 20 UG, DAILY (1/D)
  3. PLAVIX [Concomitant]
  4. VITAMIN TAB [Concomitant]
  5. MINERALS NOS [Concomitant]

REACTIONS (6)
  - ISCHAEMIC STROKE [None]
  - MONOPLEGIA [None]
  - NERVE COMPRESSION [None]
  - NERVE INJURY [None]
  - PNEUMONIA [None]
  - SPEECH DISORDER [None]
